FAERS Safety Report 6728040-8 (Version None)
Quarter: 2010Q2

REPORT INFORMATION
  Report Type: 
  Country: None (occurrence: None)
  Receive Date: 20100517
  Receipt Date: 20100506
  Transmission Date: 20101027
  Serious: Yes (Hospitalization)
  Sender: FDA-Public Use
  Company Number: JP-JNJFOC-20100505173

PATIENT
  Age: 30 Year
  Sex: Male

DRUGS (4)
  1. REMICADE [Suspect]
     Indication: CROHN'S DISEASE
     Route: 042
  2. REMICADE [Suspect]
     Route: 042
  3. REMICADE [Suspect]
     Route: 042
  4. REMICADE [Suspect]
     Dosage: 3 DOSES ON UNSPECIFIED DATES
     Route: 042

REACTIONS (2)
  - CROHN'S DISEASE [None]
  - TAKAYASU'S ARTERITIS [None]
